FAERS Safety Report 6611871-2 (Version None)
Quarter: 2010Q1

REPORT INFORMATION
  Report Type: 
  Country: None (occurrence: None)
  Receive Date: 20100303
  Receipt Date: 20100222
  Transmission Date: 20100710
  Serious: Yes (Other)
  Sender: FDA-Public Use
  Company Number: PL-AMGEN-QUU394079

PATIENT
  Sex: Female
  Weight: 69 kg

DRUGS (12)
  1. ARANESP [Suspect]
     Indication: RENAL FAILURE CHRONIC
     Route: 058
     Dates: start: 20040505, end: 20090813
  2. METHYLDOPA [Concomitant]
     Route: 048
     Dates: start: 20050201
  3. NO-SPA [Concomitant]
     Route: 048
  4. DUPHASTON [Concomitant]
     Route: 048
  5. ACIDUM FOLICUM [Concomitant]
     Route: 048
     Dates: start: 20090430
  6. DIHYDRALAZINE SULFATE [Concomitant]
     Route: 048
  7. FERROUS SULFATE TAB [Concomitant]
     Route: 048
     Dates: start: 20050320, end: 20050401
  8. FERRUM [Concomitant]
     Route: 030
     Dates: start: 20090420, end: 20090505
  9. ISOPTIN [Concomitant]
     Route: 048
     Dates: start: 20090528, end: 20090813
  10. FUROSEMID [Concomitant]
     Route: 048
     Dates: start: 20080127, end: 20080513
  11. CATAPRES [Concomitant]
     Route: 048
     Dates: start: 20030728
  12. UNSPECIFIED MEDICATION [Concomitant]
     Dates: start: 20090320, end: 20090401

REACTIONS (6)
  - ANAEMIA [None]
  - CAESAREAN SECTION [None]
  - POLYHYDRAMNIOS [None]
  - PREGNANCY INDUCED HYPERTENSION [None]
  - PROTEINURIA [None]
  - RENAL FAILURE [None]
